FAERS Safety Report 12507534 (Version 3)
Quarter: 2018Q2

REPORT INFORMATION
  Report Type: Report from Study
  Country: US (occurrence: US)
  Receive Date: 20160629
  Receipt Date: 20180420
  Transmission Date: 20180711
  Serious: Yes (Hospitalization, Other)
  Sender: FDA-Public Use
  Company Number: US-BRISTOL-MYERS SQUIBB COMPANY-BMS-2016-051385

PATIENT
  Age: 64 Year
  Sex: Female
  Weight: 60.64 kg

DRUGS (2)
  1. IPILIMUMAB [Suspect]
     Active Substance: IPILIMUMAB
     Indication: MALIGNANT MELANOMA
     Dosage: 185 MG, TOTAL
     Route: 042
     Dates: start: 20160525, end: 20160525
  2. NIVOLUMAB [Suspect]
     Active Substance: NIVOLUMAB
     Indication: MALIGNANT MELANOMA
     Dosage: 61 MG, TOTAL
     Route: 042
     Dates: start: 20160525, end: 20160525

REACTIONS (4)
  - Blood ketone body increased [Recovered/Resolved]
  - Lipase increased [Recovered/Resolved]
  - Hyperglycaemia [Recovered/Resolved]
  - Lung infection [Recovered/Resolved]

NARRATIVE: CASE EVENT DATE: 20160614
